FAERS Safety Report 15144063 (Version 2)
Quarter: 2018Q3

REPORT INFORMATION
  Report Type: Report from Study
  Country: FR (occurrence: FR)
  Receive Date: 20180713
  Receipt Date: 20180803
  Transmission Date: 20181010
  Serious: Yes (Hospitalization)
  Sender: FDA-Public Use
  Company Number: FR-PFIZER INC-2018244190

PATIENT
  Age: 87 Year
  Sex: Female
  Weight: 57 kg

DRUGS (15)
  1. LANTUS [Concomitant]
     Active Substance: INSULIN GLARGINE
     Dosage: 15 IU, 1X/DAY, IN THE MORNING
  2. FEMARA [Suspect]
     Active Substance: LETROZOLE
     Indication: BREAST CANCER METASTATIC
     Dosage: 2.5 MG, 1X/DAY
     Route: 048
     Dates: start: 20180223
  3. ESIDREX [Concomitant]
     Active Substance: HYDROCHLOROTHIAZIDE
     Dosage: 0.5 DF, 1X/DAY, IN THE MORNING
     Route: 048
  4. LANTUS [Concomitant]
     Active Substance: INSULIN GLARGINE
     Dosage: 6 IU, 1X/DAY, IN THE MORNING
  5. TAREG [Concomitant]
     Active Substance: VALSARTAN
     Dosage: 1 DF, 1X/DAY, IN THE MORNING
     Route: 048
  6. SMECTA [Concomitant]
     Active Substance: MONTMORILLONITE
     Dosage: UNK
  7. PALBOCICLIB [Suspect]
     Active Substance: PALBOCICLIB
     Indication: BREAST CANCER METASTATIC
     Dosage: 125 MG, UNK
     Route: 048
     Dates: start: 20180527
  8. TARDYFERON [Concomitant]
     Active Substance: FERROUS SULFATE
     Dosage: 1 DF, 1X/DAY, IN THE MORNING
  9. HUMALOG [Concomitant]
     Active Substance: INSULIN LISPRO
     Dosage: 4 IU, AS NEEDED
  10. FEMARA [Suspect]
     Active Substance: LETROZOLE
     Dosage: 1 DF, ONCE DAILY (MORNING)
  11. INNOHEP [Concomitant]
     Active Substance: TINZAPARIN SODIUM
     Dosage: 10000 UNK, 1X/DAY AT 4 P.M.
     Route: 058
  12. AMLOR [Concomitant]
     Active Substance: AMLODIPINE BESYLATE
     Dosage: 1 DF, 1X/DAY, IN THE MORNING
     Route: 048
  13. TEMERIT [Concomitant]
     Active Substance: NEBIVOLOL
     Dosage: 1 DF, 1X/DAY, IN THE MORNING
  14. TAREG [Concomitant]
     Active Substance: VALSARTAN
     Dosage: 40 MG, 1X/DAY, IN THE MORNING
  15. NOVONORM [Concomitant]
     Active Substance: REPAGLINIDE
     Dosage: 1 DF, 3X/DAY

REACTIONS (2)
  - Dyspnoea [Recovered/Resolved]
  - Dyspnoea [Recovered/Resolved with Sequelae]

NARRATIVE: CASE EVENT DATE: 20180610
